FAERS Safety Report 11309618 (Version 1)
Quarter: 2015Q3

REPORT INFORMATION
  Report Type: Spontaneous
  Country: IT (occurrence: IT)
  Receive Date: 20150724
  Receipt Date: 20150724
  Transmission Date: 20151125
  Serious: Yes (Hospitalization)
  Sender: FDA-Public Use
  Company Number: IT-BAYER-2015-386265

PATIENT
  Age: 73 Year
  Sex: Female

DRUGS (5)
  1. FELDENE [Suspect]
     Active Substance: PIROXICAM
     Dosage: 20 MG, QD
     Route: 030
     Dates: start: 20150522, end: 20150524
  2. METFORAL [Concomitant]
     Active Substance: METFORMIN HYDROCHLORIDE
     Indication: TYPE 2 DIABETES MELLITUS
  3. SERENASE [HALOPERIDOL] [Concomitant]
  4. DAFLON [DIOSMIN] [Concomitant]
  5. CARDIOASPIRIN [Suspect]
     Active Substance: ASPIRIN
     Dosage: 100 MG, QD
     Route: 048
     Dates: start: 20150510, end: 20150525

REACTIONS (2)
  - Gastric ulcer haemorrhage [Unknown]
  - Melaena [Unknown]

NARRATIVE: CASE EVENT DATE: 20150524
